FAERS Safety Report 8243667-2 (Version None)
Quarter: 2012Q1

REPORT INFORMATION
  Report Type: 
  Country: None (occurrence: None)
  Receive Date: 20120309
  Receipt Date: 20111209
  Transmission Date: 20120608
  Serious: Yes (Disabling)
  Sender: FDA-Public Use
  Company Number: 216076

PATIENT
  Age: 54 Year
  Sex: Female
  Weight: 80 kg

DRUGS (4)
  1. DAIVOBET OINTMENT (DAIVOBET /01643401/) (OINMENT) [Suspect]
     Indication: PSORIASIS
     Dosage: MONDAY TO FRIDAY, TOPICAL
     Route: 061
     Dates: start: 20111107, end: 20111120
  2. PREDNISONE TAB [Concomitant]
  3. CLOBEX SPRAY (CLOBETASOL PROPIONATE) [Concomitant]
  4. CORTISONE INJECTION IN BURSA (CORTISONE ACETATE) [Concomitant]

REACTIONS (4)
  - PRURITUS [None]
  - RASH MACULAR [None]
  - RASH [None]
  - BURNING SENSATION [None]
